FAERS Safety Report 8027284-5 (Version None)
Quarter: 2012Q1

REPORT INFORMATION
  Report Type: 
  Country: None (occurrence: None)
  Receive Date: 20120105
  Receipt Date: 20120105
  Transmission Date: 20120608
  Serious: Yes (Other)
  Sender: FDA-Public Use
  Company Number: None

PATIENT
  Sex: Female

DRUGS (12)
  1. IBUPROFEN [Concomitant]
  2. SYNTHROID [Concomitant]
  3. AVONEX [Suspect]
     Indication: MULTIPLE SCLEROSIS
     Dosage: 30MCG 1 X WEEK INJECT INTRAMUSCULARLY
     Route: 030
     Dates: start: 20111214
  4. AMANTADINE HCL [Concomitant]
  5. HYDROCET [Concomitant]
  6. ALPRAZOLAM [Concomitant]
  7. FOLIC ACID [Concomitant]
  8. PIROXICAM [Concomitant]
  9. BETASERON [Suspect]
     Indication: MULTIPLE SCLEROSIS
     Dosage: .3MG EVERY OTHER DAY INJECT SUBCUTANEOUSLY
     Route: 058
     Dates: start: 20110801
  10. PROBIOTIC [Concomitant]
  11. AMBIEN [Concomitant]
  12. VITAMIN D [Concomitant]

REACTIONS (4)
  - SUICIDAL IDEATION [None]
  - TEARFULNESS [None]
  - THINKING ABNORMAL [None]
  - DEPRESSION [None]
